FAERS Safety Report 8392839-5 (Version None)
Quarter: 2012Q2

REPORT INFORMATION
  Report Type: 
  Country: None (occurrence: None)
  Receive Date: 20120529
  Receipt Date: 20120523
  Transmission Date: 20120825
  Serious: Yes (Other)
  Sender: FDA-Public Use
  Company Number: US-PFIZER INC-2012125428

PATIENT
  Age: 56 Year
  Sex: Female

DRUGS (2)
  1. OXYCONTIN [Suspect]
     Indication: PAIN
     Dosage: UNK, EVERY 4 HOURS
  2. LIPITOR [Suspect]
     Dosage: UNK

REACTIONS (6)
  - FALL [None]
  - NERVOUS SYSTEM DISORDER [None]
  - FEELING ABNORMAL [None]
  - PAIN [None]
  - LIMB INJURY [None]
  - NEURALGIA [None]
